FAERS Safety Report 8249715-8 (Version None)
Quarter: 2012Q1

REPORT INFORMATION
  Report Type: 
  Country: None (occurrence: None)
  Receive Date: 20120328
  Receipt Date: 20120313
  Transmission Date: 20120608
  Serious: Yes (Hospitalization, Other)
  Sender: FDA-Public Use
  Company Number: FK201200845

PATIENT
  Age: 63 Year
  Sex: Female

DRUGS (1)
  1. DOXORUBICIN HCL [Suspect]
     Indication: BREAST CANCER METASTATIC

REACTIONS (11)
  - HYPERTENSION [None]
  - VASOGENIC CEREBRAL OEDEMA [None]
  - VOMITING [None]
  - MENTAL STATUS CHANGES [None]
  - DISORIENTATION [None]
  - POSTERIOR REVERSIBLE ENCEPHALOPATHY SYNDROME [None]
  - ABDOMINAL PAIN [None]
  - CONFUSIONAL STATE [None]
  - LETHARGY [None]
  - GRAND MAL CONVULSION [None]
  - NAUSEA [None]
